FAERS Safety Report 15691545 (Version 21)
Quarter: 2025Q4

REPORT INFORMATION
  Report Type: Report from Study
  Country: BR (occurrence: BR)
  Receive Date: 20181205
  Receipt Date: 20251111
  Transmission Date: 20260118
  Serious: Yes (Hospitalization, Other)
  Sender: TAKEDA
  Company Number: BR-TAKEDA-2018TUS031569

PATIENT
  Age: 29 Year
  Sex: Male
  Weight: 55 kg

DRUGS (2)
  1. VEDOLIZUMAB [Suspect]
     Active Substance: VEDOLIZUMAB
     Indication: Crohn^s disease
     Dosage: 300 MILLIGRAM
  2. VEDOLIZUMAB [Suspect]
     Active Substance: VEDOLIZUMAB
     Dosage: 300 MILLIGRAM, Q4WEEKS

REACTIONS (20)
  - Intestinal fistula [Unknown]
  - Crohn^s disease [Unknown]
  - Post procedural complication [Unknown]
  - Skin lesion inflammation [Unknown]
  - Bladder pain [Unknown]
  - Enterovesical fistula [Recovered/Resolved]
  - Urinary tract infection [Unknown]
  - Dysphonia [Recovering/Resolving]
  - Inappropriate schedule of product administration [Unknown]
  - Dermatitis [Unknown]
  - Product dose omission issue [Unknown]
  - Abdominal pain [Unknown]
  - Decreased appetite [Unknown]
  - Asthenia [Unknown]
  - Vomiting [Unknown]
  - Pruritus [Unknown]
  - Nasopharyngitis [Recovering/Resolving]
  - Influenza [Unknown]
  - Pyrexia [Unknown]
  - Skin lesion [Recovered/Resolved]

NARRATIVE: CASE EVENT DATE: 20181021
